FAERS Safety Report 4409720-6 (Version None)
Quarter: 2004Q3

REPORT INFORMATION
  Report Type: 
  Country: None (occurrence: None)
  Receive Date: 20040723
  Receipt Date: 20420712
  Transmission Date: 20050211
  Serious: Yes (Hospitalization)
  Sender: FDA-Public Use
  Company Number: 2004223359US

PATIENT
  Age: 84 Year
  Sex: Female
  Weight: 68 kg

DRUGS (5)
  1. FLAGYL [Suspect]
     Indication: DIVERTICULITIS
     Dosage: 500 MG, QID, ORAL
     Route: 048
     Dates: start: 20040624, end: 20040624
  2. FLAGYL I.V. [Suspect]
     Dosage: 500 MG, TID, IV
     Route: 042
     Dates: start: 20040624, end: 20040625
  3. CARDIZEM [Concomitant]
  4. AGGRENOX [Concomitant]
  5. LEVAQUIN [Concomitant]

REACTIONS (4)
  - ABDOMINAL PAIN [None]
  - ASCITES [None]
  - MALAISE [None]
  - NAUSEA [None]
